FAERS Safety Report 9243494 (Version 1)
Quarter: 2013Q1

REPORT INFORMATION
  Report Type: Spontaneous
  Country: US (occurrence: None)
  Receive Date: 20121123
  Receipt Date: 20121123
  Transmission Date: 20140127
  Serious: No
  Sender: FDA-Public Use
  Company Number: 359259

PATIENT
  Age: 58 Year
  Sex: Female
  Weight: 88.4 kg

DRUGS (9)
  1. VICTOZA [Suspect]
     Indication: TYPE 2 DIABETES MELLITUS
     Route: 058
     Dates: start: 20101123, end: 20120830
  2. METFORMIN (METFORMIN) [Concomitant]
  3. LEVEMIR (INSULIN DETEMIR) SOLUTION FOR INJECTION, 0.0024MOL/L [Concomitant]
  4. CARVEDILOL (CARVEDILOL) [Concomitant]
  5. HYDROCHLORTHIAZIDE (HYDROCHLORTHIAZIDE) [Concomitant]
  6. RAMIPRIL (RAMIPRIL) [Concomitant]
  7. SIMVASTATIN (SIMVASTATIN) [Concomitant]
  8. MONTELUKAST [Concomitant]
  9. ALBUTEROL/00139501/(SALBUTAMOL) [Concomitant]

REACTIONS (1)
  - Pancreatitis [None]
